FAERS Safety Report 19291871 (Version 8)
Quarter: 2022Q4

REPORT INFORMATION
  Report Type: Other
  Country: US (occurrence: None)
  Receive Date: 20210524
  Receipt Date: 20221107
  Transmission Date: 20230113
  Serious: Yes (Disabling, Other)
  Sender: FDA-Public Use
  Company Number: US-ROCHE-2831739

PATIENT
  Age: 42 Year
  Sex: Male
  Weight: 61.290 kg

DRUGS (5)
  1. EVRYSDI [Suspect]
     Active Substance: RISDIPLAM
     Indication: Spinal muscular atrophy
     Route: 048
     Dates: start: 20201203
  2. EVRYSDI [Suspect]
     Active Substance: RISDIPLAM
     Dosage: 0.75 MG /ML 80 ML IN 100 L BOTTLE
     Route: 048
     Dates: start: 202011
  3. COVID-19 VACCINE NOS [Suspect]
     Active Substance: COVID-19 VACCINE NOS
     Indication: COVID-19 immunisation
     Route: 065
     Dates: start: 20210422
  4. HUMIRA [Concomitant]
     Active Substance: ADALIMUMAB
  5. ATIVAN [Concomitant]
     Active Substance: LORAZEPAM

REACTIONS (12)
  - Feeling hot [Not Recovered/Not Resolved]
  - Pain [Not Recovered/Not Resolved]
  - Musculoskeletal chest pain [Not Recovered/Not Resolved]
  - Paraesthesia [Recovered/Resolved]
  - Perirectal abscess [Not Recovered/Not Resolved]
  - Abscess limb [Not Recovered/Not Resolved]
  - Ankylosing spondylitis [Recovering/Resolving]
  - Spondylitis [Unknown]
  - Mobility decreased [Unknown]
  - Asthenia [Recovering/Resolving]
  - Muscular weakness [Not Recovered/Not Resolved]
  - Pain in extremity [Not Recovered/Not Resolved]

NARRATIVE: CASE EVENT DATE: 20210224
